FAERS Safety Report 4319878-5 (Version None)
Quarter: 2004Q1

REPORT INFORMATION
  Report Type: 
  Country: None (occurrence: None)
  Receive Date: 20040319
  Receipt Date: 20040309
  Transmission Date: 20041129
  Serious: Yes (Hospitalization, Other)
  Sender: FDA-Public Use
  Company Number: PHRM2004FR01111

PATIENT
  Age: 13 Year
  Sex: Female
  Weight: 54 kg

DRUGS (2)
  1. TEGRETOL [Suspect]
     Route: 048
     Dates: start: 19910701
  2. KEPPRA [Suspect]
     Route: 048
     Dates: start: 20030415

REACTIONS (6)
  - BLOOD ALKALINE PHOSPHATASE INCREASED [None]
  - BLOOD PARATHYROID HORMONE INCREASED [None]
  - HUMERUS FRACTURE [None]
  - HYPOCALCAEMIA [None]
  - PYREXIA [None]
  - VITAMIN D DECREASED [None]
